FAERS Safety Report 9012208 (Version 1)
Quarter: 2013Q1

REPORT INFORMATION
  Report Type: Spontaneous
  Country: FR (occurrence: FR)
  Receive Date: 20130114
  Receipt Date: 20130114
  Transmission Date: 20140127
  Serious: Yes (Hospitalization)
  Sender: FDA-Public Use
  Company Number: FR-PFIZER INC-2013008294

PATIENT
  Age: 30 Year
  Sex: Male

DRUGS (2)
  1. EFFEXOR LP [Suspect]
     Dosage: 1 DF, SINGLE
     Route: 048
     Dates: start: 20120811, end: 20120811
  2. MARSILID PHOSPHATE [Interacting]
     Dosage: UNK
     Route: 048
     Dates: end: 20120810

REACTIONS (2)
  - Drug interaction [Recovered/Resolved]
  - Status epilepticus [Recovered/Resolved]
